FAERS Safety Report 7597270-8 (Version None)
Quarter: 2011Q3

REPORT INFORMATION
  Report Type: 
  Country: None (occurrence: None)
  Receive Date: 20110708
  Receipt Date: 20110201
  Transmission Date: 20111222
  Serious: No
  Sender: FDA-Public Use
  Company Number: US-GLAXOSMITHKLINE-A0911168A

PATIENT
  Age: 71 Year
  Sex: Male

DRUGS (12)
  1. DIOVAN [Concomitant]
  2. FOLIC ACID [Concomitant]
  3. MILK THISTLE [Concomitant]
  4. FLOVENT [Suspect]
     Indication: ASTHMA
     Dosage: 2PUFF TWICE PER DAY
     Route: 055
     Dates: start: 20110127, end: 20110128
  5. TRICOR [Concomitant]
  6. VIAGRA [Concomitant]
  7. FLUTICASONE PROPIONATE [Concomitant]
  8. ENABLEX [Concomitant]
  9. LOVAZA [Concomitant]
  10. FINASTERIDE [Concomitant]
  11. MULTI-VITAMIN [Concomitant]
  12. ASPIRIN [Concomitant]

REACTIONS (3)
  - THROAT IRRITATION [None]
  - ABDOMINAL PAIN UPPER [None]
  - PALPITATIONS [None]
